FAERS Safety Report 5197187-2 (Version None)
Quarter: 2007Q1

REPORT INFORMATION
  Report Type: 
  Country: None (occurrence: None)
  Receive Date: 20070103
  Receipt Date: 20061221
  Transmission Date: 20070707
  Serious: Yes (Hospitalization, Disabling)
  Sender: FDA-Public Use
  Company Number: DE-ROCHE-329349

PATIENT
  Age: 21 Year
  Sex: Female
  Weight: 80 kg

DRUGS (5)
  1. TAMIFLU [Suspect]
     Route: 048
     Dates: start: 20030112, end: 20030113
  2. IBUPROFEN [Suspect]
     Route: 048
     Dates: start: 20030111, end: 20030113
  3. GRIPPOSTAD [Suspect]
     Route: 048
     Dates: start: 20030112, end: 20030113
  4. UMCKALOABO [Suspect]
     Route: 065
     Dates: start: 20030111, end: 20030112
  5. ASPIRIN [Concomitant]
     Indication: INFLUENZA

REACTIONS (44)
  - AMNESIA [None]
  - ASTHENIA [None]
  - BLOOD CHOLESTEROL INCREASED [None]
  - BLOOD CULTURE POSITIVE [None]
  - BLOOD TRIGLYCERIDES INCREASED [None]
  - CHOLECYSTITIS [None]
  - CHOLELITHIASIS [None]
  - CHOLESTASIS [None]
  - CLONUS [None]
  - CONFUSIONAL STATE [None]
  - CONJUNCTIVAL OEDEMA [None]
  - CONJUNCTIVITIS [None]
  - DRUG HYPERSENSITIVITY [None]
  - ESCHERICHIA INFECTION [None]
  - FALL [None]
  - FLATULENCE [None]
  - GENERAL PHYSICAL HEALTH DETERIORATION [None]
  - HEPATOSPLENOMEGALY [None]
  - HYPOTENSION [None]
  - IRIS ADHESIONS [None]
  - LIPASE INCREASED [None]
  - MUSCLE SPASMS [None]
  - MYOPATHY [None]
  - NEUROPSYCHOLOGICAL TEST ABNORMAL [None]
  - NO THERAPEUTIC RESPONSE [None]
  - PEMPHIGOID [None]
  - PLEURAL EFFUSION [None]
  - PNEUMONIA [None]
  - PROTEUS INFECTION [None]
  - PUPILS UNEQUAL [None]
  - RASH [None]
  - RESTLESSNESS [None]
  - STAPHYLOCOCCAL INFECTION [None]
  - STEVENS-JOHNSON SYNDROME [None]
  - STOMATITIS [None]
  - SYMBLEPHARON [None]
  - TACHYCARDIA [None]
  - TONGUE DISORDER [None]
  - TRANSAMINASES INCREASED [None]
  - TREMOR [None]
  - TRICHIASIS [None]
  - URETHRAL PAIN [None]
  - VAGINAL CANDIDIASIS [None]
  - VERTIGO [None]
